FAERS Safety Report 15750543 (Version 1)
Quarter: 2018Q4

REPORT INFORMATION
  Report Type: Report from Study
  Country: US (occurrence: US)
  Receive Date: 20181221
  Receipt Date: 20181221
  Transmission Date: 20190205
  Serious: Yes (Hospitalization, Other)
  Sender: FDA-Public Use
  Company Number: US-GILEAD-2018-0376565

PATIENT
  Age: 48 Year
  Sex: Female

DRUGS (16)
  1. ALBUTEROL [SALBUTAMOL SULFATE] [Concomitant]
  2. LYRICA [Concomitant]
     Active Substance: PREGABALIN
  3. ALLOPURINOL. [Concomitant]
     Active Substance: ALLOPURINOL
  4. WELLBUTRIN [Concomitant]
     Active Substance: BUPROPION HYDROCHLORIDE
  5. LASIX [Concomitant]
     Active Substance: FUROSEMIDE
  6. METOPROLOL. [Concomitant]
     Active Substance: METOPROLOL
  7. SPIRIVA [Concomitant]
     Active Substance: TIOTROPIUM BROMIDE MONOHYDRATE
  8. ASPIRIN (E.C.) [Concomitant]
     Active Substance: ASPIRIN
  9. COLCHICINE. [Concomitant]
     Active Substance: COLCHICINE
  10. PLAVIX [Concomitant]
     Active Substance: CLOPIDOGREL BISULFATE
  11. AMBRISENTAN [Suspect]
     Active Substance: AMBRISENTAN
     Indication: PULMONARY HYPERTENSION
     Dosage: 5 MG, QD
     Route: 065
     Dates: start: 20181102
  12. SYMBICORT [Concomitant]
     Active Substance: BUDESONIDE\FORMOTEROL FUMARATE DIHYDRATE
  13. TIZANIDINE. [Concomitant]
     Active Substance: TIZANIDINE
  14. ADCIRCA [Suspect]
     Active Substance: TADALAFIL
     Indication: PRODUCT USED FOR UNKNOWN INDICATION
     Route: 065
  15. PANTOPRAZOLE [Concomitant]
     Active Substance: PANTOPRAZOLE
  16. TRAZODONE [Concomitant]
     Active Substance: TRAZODONE HYDROCHLORIDE

REACTIONS (4)
  - Hot flush [Not Recovered/Not Resolved]
  - Cardiac failure congestive [Unknown]
  - Nasal congestion [Recovered/Resolved]
  - Nasal congestion [Not Recovered/Not Resolved]

NARRATIVE: CASE EVENT DATE: 20181115
